FAERS Safety Report 10008024 (Version 5)
Quarter: 2016Q3

REPORT INFORMATION
  Report Type: Report from Study
  Country: JP (occurrence: JP)
  Receive Date: 20140313
  Receipt Date: 20160810
  Transmission Date: 20161108
  Serious: Yes (Other)
  Sender: FDA-Public Use
  Company Number: PHHY2012JP004949

PATIENT
  Age: 58 Year
  Sex: Male

DRUGS (50)
  1. CLOZARIL [Suspect]
     Active Substance: CLOZAPINE
     Dosage: 25 MG, QD
     Route: 048
     Dates: start: 20111215, end: 20111217
  2. CLOZARIL [Suspect]
     Active Substance: CLOZAPINE
     Dosage: 175 MG, QD
     Route: 048
     Dates: start: 20120306, end: 20120310
  3. CLOZARIL [Suspect]
     Active Substance: CLOZAPINE
     Dosage: 200 MG, QD
     Route: 048
     Dates: start: 20120311, end: 20120313
  4. RISPERIDONE. [Concomitant]
     Active Substance: RISPERIDONE
     Dosage: 4 MG, QD
     Route: 048
     Dates: start: 20120126, end: 20120131
  5. LIMAS [Concomitant]
     Active Substance: LITHIUM CARBONATE
     Dosage: 1000 MG, QD
     Route: 048
     Dates: start: 20120404, end: 20120426
  6. CLOZARIL [Suspect]
     Active Substance: CLOZAPINE
     Indication: SCHIZOPHRENIA
     Dosage: 12.5 MG, QD
     Route: 048
     Dates: start: 20111214, end: 20111214
  7. CLOZARIL [Suspect]
     Active Substance: CLOZAPINE
     Dosage: 25 MG, QD
     Route: 048
     Dates: start: 20120126, end: 20120130
  8. CLOZARIL [Suspect]
     Active Substance: CLOZAPINE
     Dosage: 150 MG, QD
     Route: 048
     Dates: start: 20120425, end: 20120504
  9. CLOZARIL [Suspect]
     Active Substance: CLOZAPINE
     Dosage: 50 MG, QD
     Route: 048
     Dates: start: 20111218, end: 20111220
  10. CLOZARIL [Suspect]
     Active Substance: CLOZAPINE
     Dosage: 75 MG, QD
     Route: 048
     Dates: start: 20120215, end: 20120219
  11. CLOZARIL [Suspect]
     Active Substance: CLOZAPINE
     Dosage: 150 MG, QD
     Route: 048
     Dates: start: 20120301, end: 20120305
  12. VALPROIC ACID. [Suspect]
     Active Substance: VALPROIC ACID
     Indication: AFFECTIVE DISORDER
     Dosage: UNK
     Route: 065
     Dates: end: 201112
  13. VALPROIC ACID. [Suspect]
     Active Substance: VALPROIC ACID
     Dosage: UNK
     Route: 065
     Dates: start: 201205
  14. VALPROIC ACID. [Suspect]
     Active Substance: VALPROIC ACID
     Dosage: UNK
     Route: 065
  15. RISPERIDONE. [Concomitant]
     Active Substance: RISPERIDONE
     Dosage: 4 MG, QD
     Route: 048
     Dates: start: 20111225, end: 20120101
  16. RISPERIDONE. [Concomitant]
     Active Substance: RISPERIDONE
     Dosage: 5 MG, QD
     Route: 048
     Dates: start: 20120117, end: 20120124
  17. FLUNITRAZEPAM [Concomitant]
     Active Substance: FLUNITRAZEPAM
     Indication: SCHIZOPHRENIA
     Dosage: 2 MG, QD
     Route: 048
     Dates: start: 20111213
  18. LIMAS [Concomitant]
     Active Substance: LITHIUM CARBONATE
     Dosage: 800 MG, QD
     Route: 048
     Dates: start: 20120427, end: 20120607
  19. OMEPRAZOLE. [Concomitant]
     Active Substance: OMEPRAZOLE
     Indication: PRODUCT USED FOR UNKNOWN INDICATION
     Dosage: 20 MG, QD
     Route: 048
     Dates: start: 20111213, end: 20120613
  20. CLOZARIL [Suspect]
     Active Substance: CLOZAPINE
     Dosage: 100 MG, QD
     Route: 048
     Dates: start: 20111224, end: 20111226
  21. CLOZARIL [Suspect]
     Active Substance: CLOZAPINE
     Dosage: 175 MG, QD
     Route: 048
     Dates: start: 20120102, end: 20120111
  22. CLOZARIL [Suspect]
     Active Substance: CLOZAPINE
     Dosage: 12.5 MG, QD
     Route: 048
     Dates: start: 20120125, end: 20120125
  23. CLOZARIL [Suspect]
     Active Substance: CLOZAPINE
     Dosage: 50 MG, QD
     Route: 048
     Dates: start: 20120131, end: 20120131
  24. CLOZARIL [Suspect]
     Active Substance: CLOZAPINE
     Dosage: 50 MG, QD
     Route: 048
     Dates: start: 20120207, end: 20120214
  25. CLOZARIL [Suspect]
     Active Substance: CLOZAPINE
     Dosage: 150 MG, QD
     Route: 048
     Dates: start: 20120317, end: 20120323
  26. RISPERIDONE. [Concomitant]
     Active Substance: RISPERIDONE
     Dosage: 1 MG, QD
     Route: 048
     Dates: start: 20120107, end: 20120108
  27. RISPERIDONE. [Concomitant]
     Active Substance: RISPERIDONE
     Dosage: 1 MG, QD
     Route: 048
     Dates: start: 20120211, end: 20120213
  28. TASMOLIN [Concomitant]
     Active Substance: BIPERIDEN
     Indication: SCHIZOPHRENIA
     Dosage: 4 MG, QD
     Route: 048
     Dates: start: 20111213
  29. EURODIN [Concomitant]
     Active Substance: ESTAZOLAM
     Indication: SCHIZOPHRENIA
     Dosage: 2 MG, QD
     Route: 048
     Dates: start: 20111213
  30. MAGNESIUM OXIDE. [Concomitant]
     Active Substance: MAGNESIUM OXIDE
     Indication: SCHIZOPHRENIA
     Dosage: 1.67 G, QD
     Route: 048
     Dates: start: 20111213, end: 20120613
  31. MUCOSTA [Concomitant]
     Active Substance: REBAMIPIDE
     Indication: PRODUCT USED FOR UNKNOWN INDICATION
     Dosage: 100 MG, QD
     Route: 048
     Dates: start: 20120202, end: 20120215
  32. CLOZARIL [Suspect]
     Active Substance: CLOZAPINE
     Dosage: 125 MG, QD
     Route: 048
     Dates: start: 20120225, end: 20120229
  33. CLOZARIL [Suspect]
     Active Substance: CLOZAPINE
     Dosage: 175 MG, QD
     Route: 048
     Dates: start: 20120314, end: 20120316
  34. CLOZARIL [Suspect]
     Active Substance: CLOZAPINE
     Dosage: 125 MG, QD
     Route: 048
     Dates: start: 20120418, end: 20120424
  35. RISPERIDONE. [Concomitant]
     Active Substance: RISPERIDONE
     Dosage: 5 MG, QD
     Route: 048
     Dates: start: 20111219, end: 20111224
  36. RISPERIDONE. [Concomitant]
     Active Substance: RISPERIDONE
     Dosage: 3 MG, QD
     Route: 048
     Dates: start: 20120102, end: 20120104
  37. RISPERIDONE. [Concomitant]
     Active Substance: RISPERIDONE
     Dosage: 2 MG, QD
     Route: 048
     Dates: start: 20120105, end: 20120106
  38. RISPERIDONE. [Concomitant]
     Active Substance: RISPERIDONE
     Dosage: 2 MG, QD
     Route: 048
     Dates: start: 20120206, end: 20120210
  39. CLOZARIL [Suspect]
     Active Substance: CLOZAPINE
     Dosage: 150 MG, QD
     Route: 048
     Dates: start: 20111230, end: 20120101
  40. CLOZARIL [Suspect]
     Active Substance: CLOZAPINE
     Dosage: 25 MG, QD
     Route: 048
     Dates: start: 20120203, end: 20120206
  41. RISPERIDONE. [Concomitant]
     Active Substance: RISPERIDONE
     Indication: PRODUCT USED FOR UNKNOWN INDICATION
     Dosage: 6 MG, QD
     Route: 048
     Dates: start: 20111214, end: 20111218
  42. RISPERIDONE. [Concomitant]
     Active Substance: RISPERIDONE
     Dosage: 6 MG, QD
     Route: 048
     Dates: start: 20120111, end: 20120114
  43. LIMAS [Concomitant]
     Active Substance: LITHIUM CARBONATE
     Indication: SCHIZOPHRENIA
     Dosage: 400 MG, QD
     Route: 048
     Dates: start: 20111213, end: 20120315
  44. CLOZARIL [Suspect]
     Active Substance: CLOZAPINE
     Dosage: 125 MG, QD
     Route: 048
     Dates: start: 20111227, end: 20111229
  45. RISPERIDONE. [Concomitant]
     Active Substance: RISPERIDONE
     Dosage: 3 MG, QD
     Route: 048
     Dates: start: 20120201, end: 20120205
  46. LIMAS [Concomitant]
     Active Substance: LITHIUM CARBONATE
     Dosage: 800 MG, QD
     Route: 048
     Dates: start: 20120316, end: 20120403
  47. MUCOSTA [Concomitant]
     Active Substance: REBAMIPIDE
     Dosage: 100 MG, QD
     Route: 048
     Dates: start: 20120314
  48. CLOZARIL [Suspect]
     Active Substance: CLOZAPINE
     Dosage: 75 MG, QD
     Route: 048
     Dates: start: 20111221, end: 20111223
  49. CLOZARIL [Suspect]
     Active Substance: CLOZAPINE
     Dosage: 100 MG, QD
     Route: 048
     Dates: start: 20120220, end: 20120224
  50. CLOZARIL [Suspect]
     Active Substance: CLOZAPINE
     Dosage: 100 MG, QD
     Route: 048
     Dates: start: 20120324, end: 20120417

REACTIONS (15)
  - Eosinophilia [Unknown]
  - Insomnia [Unknown]
  - Pyrexia [Recovered/Resolved]
  - Oropharyngeal pain [Unknown]
  - Hyperammonaemia [Unknown]
  - Abnormal behaviour [Unknown]
  - Restlessness [Unknown]
  - Neutropenia [Recovered/Resolved]
  - Psychiatric symptom [Unknown]
  - Pneumonia [Recovered/Resolved]
  - Leukopenia [Recovered/Resolved]
  - Eating disorder [Unknown]
  - Drug ineffective [Unknown]
  - Intentional self-injury [Unknown]
  - Cough [Unknown]

NARRATIVE: CASE EVENT DATE: 201112
